FAERS Safety Report 5473284-9 (Version None)
Quarter: 2007Q4

REPORT INFORMATION
  Report Type: 
  Country: None (occurrence: None)
  Receive Date: 20071001
  Receipt Date: 20070921
  Transmission Date: 20080405
  Serious: Yes (Other)
  Sender: FDA-Public Use
  Company Number: US-JNJFOC-20070707154

PATIENT
  Sex: Male
  Weight: 96.62 kg

DRUGS (1)
  1. REMICADE [Suspect]
     Indication: RHEUMATOID ARTHRITIS
     Dosage: LAST INFUSION
     Route: 042

REACTIONS (7)
  - CHEST PAIN [None]
  - CONVULSION [None]
  - HYPERHIDROSIS [None]
  - HYPERTENSION [None]
  - INFUSION RELATED REACTION [None]
  - OEDEMA MOUTH [None]
  - PHARYNGEAL OEDEMA [None]
